FAERS Safety Report 7969580-3 (Version None)
Quarter: 2011Q4

REPORT INFORMATION
  Report Type: 
  Country: None (occurrence: None)
  Receive Date: 20111212
  Receipt Date: 20111129
  Transmission Date: 20120403
  Serious: Yes (Hospitalization)
  Sender: FDA-Public Use
  Company Number: FR-PFIZER INC-2011290312

PATIENT
  Age: 61 Year
  Sex: Male

DRUGS (10)
  1. VALACYCLOVIR HYDROCHLORIDE [Concomitant]
     Dosage: 500 MG, 3X/DAY
     Route: 048
     Dates: start: 20110830, end: 20110906
  2. ROVAMYCINE [Concomitant]
     Dosage: 3 DF, 3X/DAY
     Route: 048
     Dates: start: 20110830, end: 20110906
  3. PERINDOPRIL [Suspect]
     Dosage: 1 DF, 1X/DAY
     Route: 048
     Dates: start: 20110802, end: 20110901
  4. COZAAR [Suspect]
     Dosage: 50 MG, DAILY
     Route: 048
     Dates: start: 20110901
  5. ATORVASTATIN CALCIUM [Suspect]
     Dosage: 80 MG,DAILY
     Route: 048
     Dates: start: 20110802
  6. NEXIUM [Suspect]
     Dosage: 20 MG, DAILY
     Route: 048
     Dates: start: 20110802
  7. PLAVIX [Suspect]
     Dosage: 75 MG, DAILY
     Route: 048
     Dates: start: 20110802, end: 20110901
  8. EFFIENT [Suspect]
     Dosage: 10 MG, DAILY
     Route: 048
     Dates: start: 20110901
  9. ATENOLOL [Suspect]
     Dosage: 50 MG, DAILY
     Route: 048
     Dates: start: 20110802
  10. ASPIRIN [Suspect]
     Dosage: 75 MG, DAILY
     Route: 048
     Dates: start: 20110802

REACTIONS (1)
  - ANAEMIA [None]
